FAERS Safety Report 9052026 (Version 2)
Quarter: 2013Q1

REPORT INFORMATION
  Report Type: Spontaneous
  Country: GB (occurrence: GB)
  Receive Date: 20130207
  Receipt Date: 20130220
  Transmission Date: 20140127
  Serious: Yes (Other)
  Sender: FDA-Public Use
  Company Number: GB-JNJFOC-20130117367

PATIENT
  Age: 18 Year
  Sex: Female
  Weight: 63.5 kg

DRUGS (2)
  1. TRAMADOL HYDROCHLORIDE [Suspect]
     Indication: NECK PAIN
     Route: 048
     Dates: start: 20130111, end: 20130112
  2. MICROGYNON [Concomitant]
     Indication: PRODUCT USED FOR UNKNOWN INDICATION
     Route: 065

REACTIONS (5)
  - Sweat gland disorder [Not Recovered/Not Resolved]
  - Dizziness [Not Recovered/Not Resolved]
  - Nausea [Recovering/Resolving]
  - Vomiting [Recovering/Resolving]
  - Syncope [Recovered/Resolved]
